APPROVED DRUG PRODUCT: OXCARBAZEPINE
Active Ingredient: OXCARBAZEPINE
Strength: 300MG/5ML
Dosage Form/Route: SUSPENSION;ORAL
Application: A216749 | Product #001 | TE Code: AB
Applicant: HETERO LABS LTD UNIT III
Approved: Oct 20, 2023 | RLD: No | RS: No | Type: RX